FAERS Safety Report 22949506 (Version 2)
Quarter: 2023Q4

REPORT INFORMATION
  Report Type: Report from Study
  Country: FR (occurrence: FR)
  Receive Date: 20230915
  Receipt Date: 20231013
  Transmission Date: 20240110
  Serious: Yes (Hospitalization, Other)
  Sender: FDA-Public Use
  Company Number: FR-AMGEN-FRACT2023163062

PATIENT
  Age: 69 Year
  Sex: Male
  Weight: 119 kg

DRUGS (7)
  1. CARFILZOMIB [Suspect]
     Active Substance: CARFILZOMIB
     Indication: Plasma cell myeloma
     Dosage: 44 MILLIGRAM, PER CHEMO REGIM
     Route: 042
     Dates: start: 20210121
  2. CARFILZOMIB [Suspect]
     Active Substance: CARFILZOMIB
     Dosage: 80 MILLIGRAM, PER CHEMO REGIM
     Route: 042
     Dates: end: 20230428
  3. ISATUXIMAB [Suspect]
     Active Substance: ISATUXIMAB
     Indication: Plasma cell myeloma
     Dosage: 1130 MILLIGRAM, PER CHEMO REGIM
     Route: 042
     Dates: start: 20210121
  4. ISATUXIMAB [Suspect]
     Active Substance: ISATUXIMAB
     Dosage: 1160 MILLIGRAM, PER CHEMO REGIM
     Route: 042
     Dates: end: 20230428
  5. POMALIDOMIDE [Suspect]
     Active Substance: POMALIDOMIDE
     Indication: Plasma cell myeloma
     Dosage: 4 MILLIGRAM, PER CHEMO REGIM
     Route: 048
     Dates: start: 20210121
  6. POMALIDOMIDE [Suspect]
     Active Substance: POMALIDOMIDE
     Dosage: 3 MILLIGRAM, PER CHEMO REGIM
     Route: 048
     Dates: end: 20230504
  7. DEXAMETHASONE [Concomitant]
     Active Substance: DEXAMETHASONE
     Dosage: 44-40 MILLIGRAM
     Dates: start: 20210121, end: 20211223

REACTIONS (1)
  - Lung adenocarcinoma [Recovering/Resolving]

NARRATIVE: CASE EVENT DATE: 20220627
